FAERS Safety Report 17143241 (Version 1)
Quarter: 2019Q4

REPORT INFORMATION
  Report Type: Spontaneous
  Country: US (occurrence: US)
  Receive Date: 20191211
  Receipt Date: 20191211
  Transmission Date: 20200122
  Serious: No
  Sender: FDA-Public Use
  Company Number: US-AMERICAN REGENT INC-20182325

PATIENT
  Sex: Female

DRUGS (1)
  1. VENOFER [Suspect]
     Active Substance: IRON SUCROSE
     Indication: MENORRHAGIA
     Dosage: UNKNOWN
     Route: 065

REACTIONS (4)
  - Gastrointestinal disorder [Unknown]
  - Product use in unapproved indication [Unknown]
  - Lip swelling [Unknown]
  - Rash [Unknown]
